FAERS Safety Report 9990322 (Version 1)
Quarter: 2014Q1

REPORT INFORMATION
  Report Type: Report from Study
  Country: US (occurrence: US)
  Receive Date: 20140310
  Receipt Date: 20140310
  Transmission Date: 20141002
  Serious: No
  Sender: FDA-Public Use
  Company Number: US-ABBVIE-13P-163-1132349-00

PATIENT
  Age: 35 Year
  Sex: Female

DRUGS (25)
  1. HUMIRA [Suspect]
     Indication: PSORIASIS
     Dates: start: 201305, end: 201306
  2. HUMIRA [Suspect]
     Dates: start: 20130803
  3. Z-PAK [Suspect]
     Indication: UPPER RESPIRATORY TRACT INFECTION
     Dates: start: 20130611
  4. LISINOPRIL [Concomitant]
     Indication: BLOOD PRESSURE
  5. CITALOPRAM [Concomitant]
     Indication: DEPRESSION
  6. OMEPRAZOLE [Concomitant]
     Indication: GASTROOESOPHAGEAL REFLUX DISEASE
  7. COLCRYS [Concomitant]
     Indication: GOUT
  8. METHOTREXATE [Concomitant]
     Indication: ARTHRITIS
  9. GABAPENTIN [Concomitant]
     Indication: PAIN
  10. GABAPENTIN [Concomitant]
     Indication: INSOMNIA
  11. SPIRONOLACTONE [Concomitant]
     Indication: DIURETIC THERAPY
  12. ONDLYZA [Concomitant]
     Indication: DIABETES MELLITUS
  13. GLIPIZIDE [Concomitant]
     Indication: DIABETES MELLITUS
  14. ATENOLOL [Concomitant]
     Indication: BLOOD PRESSURE
  15. HYDROCODONE [Concomitant]
     Indication: PAIN
     Dosage: 10/650 MG ONE TWICE DAILY
  16. ETODOLAC [Concomitant]
     Indication: PAIN
  17. IBUPROFEN [Concomitant]
     Indication: PAIN
     Dosage: AS NEEDED
  18. FOLIC ACID [Concomitant]
     Indication: PRODUCT USED FOR UNKNOWN INDICATION
  19. FUROSEMIDE [Concomitant]
     Indication: DIURETIC THERAPY
  20. METFORMIN [Concomitant]
     Indication: DIABETES MELLITUS
  21. ZYRTEC [Concomitant]
     Indication: HYPERSENSITIVITY
     Dosage: AT BEDTIME
  22. PROAIR [Concomitant]
     Indication: ASTHMA
  23. CLOBETASOL [Concomitant]
     Indication: PSORIASIS
     Route: 061
  24. LANTUS [Concomitant]
     Indication: DIABETES MELLITUS
     Dosage: AT BEDTIME
  25. NOVOLIN [Concomitant]
     Indication: DIABETES MELLITUS

REACTIONS (4)
  - Drug hypersensitivity [Unknown]
  - Upper respiratory tract infection [Not Recovered/Not Resolved]
  - Fungal skin infection [Not Recovered/Not Resolved]
  - Psoriasis [Recovering/Resolving]
